FAERS Safety Report 9970615 (Version 1)
Quarter: 2014Q1

REPORT INFORMATION
  Report Type: Report from Study
  Country: US (occurrence: US)
  Receive Date: 20140306
  Receipt Date: 20140306
  Transmission Date: 20141002
  Serious: No
  Sender: FDA-Public Use
  Company Number: US-ABBVIE-13P-163-1147790-00

PATIENT
  Sex: Female
  Weight: 66.74 kg

DRUGS (12)
  1. HUMIRA [Suspect]
     Indication: PSORIATIC ARTHROPATHY
     Route: 058
     Dates: start: 2003
  2. IMITREX [Concomitant]
     Indication: MIGRAINE
  3. TRAMADOL [Concomitant]
     Indication: PSORIATIC ARTHROPATHY
  4. LISINOPRIL [Concomitant]
     Indication: HYPERTENSION
  5. ATENOLOL [Concomitant]
     Indication: HYPERTENSION
  6. NAPROXEN [Concomitant]
     Indication: MIGRAINE
  7. SYNTHROID [Concomitant]
     Indication: HYPOTHYROIDISM
  8. CLOBETASOL [Concomitant]
     Indication: PSORIASIS
  9. DOVONEX [Concomitant]
     Indication: PSORIASIS
  10. ELIDEL [Concomitant]
     Indication: PSORIASIS
  11. DESONIDE [Concomitant]
     Indication: PSORIASIS
  12. FLUOCINOLONE [Concomitant]
     Indication: PSORIASIS

REACTIONS (1)
  - Migraine [Not Recovered/Not Resolved]
